FAERS Safety Report 25621436 (Version 1)
Quarter: 2025Q3

REPORT INFORMATION
  Report Type: Spontaneous
  Country: US (occurrence: US)
  Receive Date: 20250730
  Receipt Date: 20250730
  Transmission Date: 20251020
  Serious: No
  Sender: MERCK SHARP & DOHME LLC
  Company Number: US-009507513-2303892

PATIENT
  Sex: Female

DRUGS (1)
  1. KEYTRUDA [Suspect]
     Active Substance: PEMBROLIZUMAB
     Indication: Neoplasm malignant
     Route: 065

REACTIONS (4)
  - Peripheral swelling [Not Recovered/Not Resolved]
  - Swelling face [Not Recovered/Not Resolved]
  - Rash [Not Recovered/Not Resolved]
  - Breast pain [Not Recovered/Not Resolved]
